FAERS Safety Report 12278099 (Version 1)
Quarter: 2016Q2

REPORT INFORMATION
  Report Type: Spontaneous
  Country: US (occurrence: US)
  Receive Date: 20160418
  Receipt Date: 20160418
  Transmission Date: 20160815
  Serious: Yes (Hospitalization, Other)
  Sender: FDA-Public Use
  Company Number: US-MYLANLABS-2016M1011918

PATIENT

DRUGS (6)
  1. BETALOK [Concomitant]
     Indication: BLOOD PRESSURE MANAGEMENT
     Dosage: 25 MG, QD WITH SUPPER
     Dates: start: 200907
  2. XGEVA [Concomitant]
     Active Substance: DENOSUMAB
     Indication: BONE DISORDER
     Dosage: 125 MG SUBCUTANEOUS INJECTION IN TUMMY ONCE EVERY 4 WKS
     Route: 058
     Dates: start: 20150604
  3. LETROZOLE. [Suspect]
     Active Substance: LETROZOLE
     Indication: BREAST CANCER STAGE IV
     Dosage: 2.5 MG, QD AT DINNER TIME
     Dates: start: 20150701
  4. VITAMIN D3 [Concomitant]
     Active Substance: CHOLECALCIFEROL
     Indication: MINERAL SUPPLEMENTATION
     Dosage: 1 GEL CAPSULE AT DINNER TIME
     Dates: start: 20150701
  5. CALTRATE                           /00944201/ [Concomitant]
     Indication: MINERAL SUPPLEMENTATION
     Dosage: 600 MG, BID AT BREAKFAST AND LUNCH
     Dates: start: 20150701
  6. IBRANCE [Suspect]
     Active Substance: PALBOCICLIB
     Indication: BREAST CANCER STAGE IV
     Dosage: 125 MG, WITH FOOD AT DINNER ONCE A DAY
     Route: 048
     Dates: start: 20150801

REACTIONS (4)
  - White blood cell count decreased [Not Recovered/Not Resolved]
  - Platelet count decreased [Not Recovered/Not Resolved]
  - Neutrophil count decreased [Not Recovered/Not Resolved]
  - Femur fracture [Recovering/Resolving]

NARRATIVE: CASE EVENT DATE: 201508
